FAERS Safety Report 11376482 (Version 1)
Quarter: 2015Q3

REPORT INFORMATION
  Report Type: Spontaneous
  Country: PL (occurrence: PL)
  Receive Date: 20150813
  Receipt Date: 20150813
  Transmission Date: 20151125
  Serious: Yes (Hospitalization, Other)
  Sender: FDA-Public Use
  Company Number: PL-GLAXOSMITHKLINE-PL2015GSK116305

PATIENT
  Age: 4 Year
  Sex: Male

DRUGS (1)
  1. LAMOTRIGINE. [Suspect]
     Active Substance: LAMOTRIGINE
     Indication: EPILEPSY
     Dosage: UNK
     Route: 065

REACTIONS (23)
  - Vomiting [Unknown]
  - Hepatomegaly [Unknown]
  - Toxic epidermal necrolysis [Unknown]
  - Lymphopenia [Unknown]
  - Electrolyte imbalance [Unknown]
  - Epstein-Barr virus infection [Unknown]
  - Seizure [Unknown]
  - Stomatitis [Unknown]
  - C-reactive protein increased [Unknown]
  - Hypoalbuminaemia [Unknown]
  - Device related sepsis [Unknown]
  - Cardiovascular disorder [Recovered/Resolved]
  - Oliguria [Unknown]
  - Erythema [Unknown]
  - Renal impairment [Recovering/Resolving]
  - Neutropenia [Unknown]
  - Stevens-Johnson syndrome [Unknown]
  - Multi-organ failure [Unknown]
  - Rash papular [Unknown]
  - Thrombocytopenia [Unknown]
  - Skin lesion [Recovered/Resolved]
  - Enterococcus test positive [Unknown]
  - Mental retardation [Unknown]
